FAERS Safety Report 6600910-0 (Version None)
Quarter: 2010Q1

REPORT INFORMATION
  Report Type: 
  Country: None (occurrence: None)
  Receive Date: 20100224
  Receipt Date: 20100224
  Transmission Date: 20100710
  Serious: No
  Sender: FDA-Public Use
  Company Number: None

PATIENT
  Sex: Female
  Weight: 65.7716 kg

DRUGS (1)
  1. CLINDAMYCIN FOR CLEOCIN [Suspect]
     Dosage: 300 MG 1 CAP 4/ DAY
     Dates: start: 20100125, end: 20100126

REACTIONS (7)
  - ARTHRALGIA [None]
  - DIARRHOEA [None]
  - DYSGEUSIA [None]
  - MOVEMENT DISORDER [None]
  - NECK PAIN [None]
  - TONGUE DISCOLOURATION [None]
  - TONGUE DISORDER [None]
